FAERS Safety Report 5808058-X (Version None)
Quarter: 2008Q3

REPORT INFORMATION
  Report Type: 
  Country: None (occurrence: None)
  Receive Date: 20080708
  Receipt Date: 20080620
  Transmission Date: 20090109
  Serious: Yes (Disabling)
  Sender: FDA-Public Use
  Company Number: DSA_32090_2008

PATIENT
  Sex: Female

DRUGS (11)
  1. DILZEM                 (DILZEM - DILTIAZEM) (NOT SPECIFIED) [Suspect]
     Indication: DRUG USE FOR UNKNOWN INDICATION
     Dosage: (60 MG TID ORAL)
     Route: 048
     Dates: start: 20071220
  2. REMINYL           (REMINYL - GALANTAMINE) [Suspect]
     Indication: DRUG USE FOR UNKNOWN INDICATION
     Dosage: (16 MG QD ORAL), (8 MG QD ORAL), (16 MG QD ORAL)
     Route: 048
     Dates: start: 20071128, end: 20080114
  3. REMINYL           (REMINYL - GALANTAMINE) [Suspect]
     Indication: DRUG USE FOR UNKNOWN INDICATION
     Dosage: (16 MG QD ORAL), (8 MG QD ORAL), (16 MG QD ORAL)
     Route: 048
     Dates: start: 20080115, end: 20080219
  4. REMINYL           (REMINYL - GALANTAMINE) [Suspect]
     Indication: DRUG USE FOR UNKNOWN INDICATION
     Dosage: (16 MG QD ORAL), (8 MG QD ORAL), (16 MG QD ORAL)
     Route: 048
     Dates: start: 20080220, end: 20080228
  5. DOSPIR (DOSPIR - IPRATROPIUM BROMIDE + SALBUTAMOL SULFATE) [Suspect]
     Indication: DRUG USE FOR UNKNOWN INDICATION
     Dosage: (1 DF TID 1 UNIT RESPIRATION (INHALATION)), (REDUCED IN RESPONSE TO ADVERSE EVENTS RESPIRATORY (INHA
     Route: 055
     Dates: start: 20070101
  6. NEXIUM [Concomitant]
  7. CALCIMAGON-D3 [Concomitant]
  8. FOSAMAX [Concomitant]
  9. DIGOXIN [Concomitant]
  10. ENOXAPARIN SODIUM [Concomitant]
  11. SINTROM [Concomitant]

REACTIONS (5)
  - COGWHEEL RIGIDITY [None]
  - DRUG INTERACTION [None]
  - DYSGRAPHIA [None]
  - INTENTION TREMOR [None]
  - TREMOR [None]
